FAERS Safety Report 13921357 (Version 1)
Quarter: 2017Q3

REPORT INFORMATION
  Report Type: Spontaneous
  Country: GB (occurrence: GB)
  Receive Date: 20170830
  Receipt Date: 20170830
  Transmission Date: 20171127
  Serious: Yes (Hospitalization)
  Sender: FDA-Public Use
  Company Number: GB-PFIZER INC-2017369216

PATIENT
  Age: 87 Year
  Sex: Male

DRUGS (1)
  1. TAZOCIN [Suspect]
     Active Substance: PIPERACILLIN SODIUM\TAZOBACTAM SODIUM
     Dosage: UNK

REACTIONS (11)
  - Urosepsis [Unknown]
  - Fall [Recovered/Resolved]
  - Diarrhoea [Unknown]
  - Faecaloma [Unknown]
  - Abdominal pain [Unknown]
  - Vomiting [Unknown]
  - Urinary incontinence [Unknown]
  - Intestinal dilatation [Unknown]
  - Drug prescribing error [Unknown]
  - Confusional state [Unknown]
  - Clostridium test positive [Unknown]

NARRATIVE: CASE EVENT DATE: 20170512
